FAERS Safety Report 12364518 (Version 2)
Quarter: 2016Q2

REPORT INFORMATION
  Report Type: Spontaneous
  Country: US (occurrence: US)
  Receive Date: 20160513
  Receipt Date: 20160516
  Transmission Date: 20160815
  Serious: Yes (Other)
  Sender: FDA-Public Use
  Company Number: US-BAXALTA-2016BLT003105

PATIENT
  Age: 6 Year
  Sex: Female
  Weight: 15.4 kg

DRUGS (2)
  1. ONCASPAR [Suspect]
     Active Substance: PEGASPARGASE
     Indication: ACUTE LYMPHOCYTIC LEUKAEMIA
     Dosage: THIRD DOSE: 1725 IU
     Route: 042
     Dates: start: 20150302, end: 20150302
  2. ONCASPAR [Suspect]
     Active Substance: PEGASPARGASE
     Dosage: FIRST DOSE
     Route: 042
     Dates: start: 20141208, end: 20141208

REACTIONS (2)
  - Circulatory collapse [Unknown]
  - Anaphylactic reaction [Recovered/Resolved]

NARRATIVE: CASE EVENT DATE: 20150302
